FAERS Safety Report 14493592 (Version 1)
Quarter: 2018Q1

REPORT INFORMATION
  Report Type: Spontaneous
  Country: US (occurrence: US)
  Receive Date: 20180206
  Receipt Date: 20180206
  Transmission Date: 20180509
  Serious: No
  Sender: FDA-Public Use
  Company Number: US-AMGEN-USASP2017084525

PATIENT
  Age: 67 Year
  Sex: Female

DRUGS (3)
  1. NEULASTA [Suspect]
     Active Substance: PEGFILGRASTIM
     Indication: PRODUCT USED FOR UNKNOWN INDICATION
     Dosage: UNK
     Route: 065
  2. TAXOL [Concomitant]
     Active Substance: PACLITAXEL
     Dosage: UNK
  3. CARBOPLATIN. [Concomitant]
     Active Substance: CARBOPLATIN
     Dosage: UNK

REACTIONS (1)
  - Sleep disorder [Unknown]

NARRATIVE: CASE EVENT DATE: 201705
